FAERS Safety Report 11512086 (Version 1)
Quarter: 2015Q3

REPORT INFORMATION
  Report Type: Spontaneous
  Country: US (occurrence: US)
  Receive Date: 20150916
  Receipt Date: 20150916
  Transmission Date: 20151125
  Serious: Yes (Hospitalization, Other)
  Sender: FDA-Public Use
  Company Number: US-HOSPIRA-3004047

PATIENT
  Age: 17 Year
  Sex: Male
  Weight: 62.4 kg

DRUGS (7)
  1. CRIZOTINIB [Suspect]
     Active Substance: CRIZOTINIB
     Indication: ANAPLASTIC LARGE CELL LYMPHOMA T- AND NULL-CELL TYPES
     Dosage: COURSE A, CYCLE 5,  ON DAYS 1 TO 21
     Route: 048
     Dates: start: 20141013, end: 20141016
  2. DEXAMETHASONE. [Suspect]
     Active Substance: DEXAMETHASONE
     Indication: ANAPLASTIC LARGE CELL LYMPHOMA T- AND NULL-CELL TYPES
     Dosage: COURSE A, CYCLE 5, ON DAYS 1 TO 5
     Route: 048
     Dates: start: 20141013, end: 20141016
  3. METHOTREXATE [Suspect]
     Active Substance: METHOTREXATE
     Indication: ANAPLASTIC LARGE CELL LYMPHOMA T- AND NULL-CELL TYPES
     Dosage: COURSE A, CYCLE 5, OVER 3 HOURS ON DAY 1
     Route: 042
     Dates: start: 20141013, end: 20141013
  4. IFOSFAMIDE. [Suspect]
     Active Substance: IFOSFAMIDE
     Indication: ANAPLASTIC LARGE CELL LYMPHOMA T- AND NULL-CELL TYPES
     Dosage: COURSE A, CYCLE 5, OVER 60 MINUTES ON DAYS 1 TO 5
     Route: 042
     Dates: start: 20141013, end: 20141016
  5. NEULASTA [Suspect]
     Active Substance: PEGFILGRASTIM
     Indication: PRODUCT USED FOR UNKNOWN INDICATION
  6. CYTARABINE. [Suspect]
     Active Substance: CYTARABINE
     Indication: ANAPLASTIC LARGE CELL LYMPHOMA T- AND NULL-CELL TYPES
     Dosage: COURSE A, CYCLE 5, OVER 1 TO 30 MINUTES ON DAYS 4 AND 5
     Route: 042
     Dates: start: 201410, end: 20141016
  7. ETOPOSIDE. [Suspect]
     Active Substance: ETOPOSIDE
     Indication: ANAPLASTIC LARGE CELL LYMPHOMA T- AND NULL-CELL TYPES
     Dosage: COURSE B, CYCLE 5, OVER 2 HOURS ON DAYS 4 TO 5
     Route: 042
     Dates: start: 201410, end: 20141016

REACTIONS (2)
  - Back pain [Recovered/Resolved]
  - Hypertension [Recovered/Resolved]

NARRATIVE: CASE EVENT DATE: 20141016
